FAERS Safety Report 10158068 (Version 2)
Quarter: 2014Q2

REPORT INFORMATION
  Report Type: Spontaneous
  Country: AU (occurrence: AU)
  Receive Date: 20140507
  Receipt Date: 20140512
  Transmission Date: 20141212
  Serious: Yes (Death, Hospitalization)
  Sender: FDA-Public Use
  Company Number: AU-BAXTER-2014BAX022370

PATIENT
  Age: 73 Year
  Sex: Female

DRUGS (2)
  1. DIANEAL PD-4 PERITONEAL DIALYSIS SOLUTION WITH 2.5% W_V GLUCOSE LOW CA [Suspect]
     Indication: PERITONEAL DIALYSIS
     Route: 033
  2. EXTRANEAL 7.5% W_V ICODEXTRIN PERITONEAL DIALYSIS SOLUTION BAG AHB5546 [Suspect]
     Indication: PERITONEAL DIALYSIS
     Route: 033

REACTIONS (2)
  - Death [Fatal]
  - Influenza [Unknown]
